FAERS Safety Report 23452639 (Version 2)
Quarter: 2024Q1

REPORT INFORMATION
  Report Type: Spontaneous
  Country: FR (occurrence: None)
  Receive Date: 20240129
  Receipt Date: 20240212
  Transmission Date: 20240410
  Serious: Yes (Hospitalization, Other)
  Sender: FDA-Public Use
  Company Number: 2024A021676

PATIENT
  Age: 1 Month
  Sex: Male
  Weight: 4.7 kg

DRUGS (1)
  1. BEYFORTUS [Suspect]
     Active Substance: NIRSEVIMAB-ALIP
     Dosage: UNK, TOTAL
     Route: 003
     Dates: start: 20230920, end: 20230920

REACTIONS (5)
  - Respiratory syncytial virus bronchiolitis [Recovered/Resolved]
  - Escherichia pyelonephritis [Recovered/Resolved]
  - Pneumonia respiratory syncytial viral [Recovering/Resolving]
  - COVID-19 [Recovered/Resolved]
  - Incorrect route of product administration [Unknown]

NARRATIVE: CASE EVENT DATE: 20230920
